FAERS Safety Report 15701523 (Version 1)
Quarter: 2018Q4

REPORT INFORMATION
  Report Type: Report from Study
  Country: None (occurrence: US)
  Receive Date: 20181208
  Receipt Date: 20181208
  Transmission Date: 20190205
  Serious: Yes (Hospitalization, Other)
  Sender: FDA-Public Use
  Company Number: US-ABBVIE-18S-163-2571672-00

PATIENT
  Age: 59 Year
  Sex: Female
  Weight: 39.95 kg

DRUGS (1)
  1. CREON [Suspect]
     Active Substance: PANCRELIPASE AMYLASE\PANCRELIPASE LIPASE\PANCRELIPASE PROTEASE
     Indication: PANCREATIC CARCINOMA
     Route: 048
     Dates: start: 2014

REACTIONS (4)
  - General physical health deterioration [Unknown]
  - Sepsis [Recovered/Resolved]
  - Hepatotoxicity [Recovering/Resolving]
  - Dehydration [Recovered/Resolved]

NARRATIVE: CASE EVENT DATE: 20181116
